FAERS Safety Report 5007339-X (Version None)
Quarter: 2006Q2

REPORT INFORMATION
  Report Type: 
  Country: None (occurrence: None)
  Receive Date: 20060519
  Receipt Date: 20060519
  Transmission Date: 20061013
  Serious: Yes (Death)
  Sender: FDA-Public Use
  Company Number: None

PATIENT
  Sex: Male
  Weight: 97.5234 kg

DRUGS (1)
  1. MAGNEVIST [Suspect]
     Indication: NUCLEAR MAGNETIC RESONANCE IMAGING ABDOMINAL
     Dosage: 40 ML PNCE IV
     Route: 042
     Dates: start: 20060418, end: 20060418

REACTIONS (3)
  - ANAPHYLACTIC REACTION [None]
  - CARDIAC ARREST [None]
  - RESPIRATORY ARREST [None]
